FAERS Safety Report 21267609 (Version 1)
Quarter: 2022Q3

REPORT INFORMATION
  Report Type: Spontaneous
  Country: PT (occurrence: PT)
  Receive Date: 20220829
  Receipt Date: 20220829
  Transmission Date: 20221027
  Serious: Yes (Other)
  Sender: FDA-Public Use
  Company Number: None

PATIENT
  Age: 83 Year
  Sex: Male

DRUGS (1)
  1. AMOXICILLIN\CLAVULANATE POTASSIUM [Suspect]
     Active Substance: AMOXICILLIN\CLAVULANATE POTASSIUM
     Indication: Wound infection pseudomonas
     Dosage: 1 ARBITRARY UNITS, Q12H
     Route: 065
     Dates: start: 20220728, end: 20220801

REACTIONS (2)
  - Hypotension [Unknown]
  - Rash [Unknown]

NARRATIVE: CASE EVENT DATE: 20220728
